FAERS Safety Report 5261657-9 (Version None)
Quarter: 2007Q1

REPORT INFORMATION
  Report Type: 
  Country: None (occurrence: None)
  Receive Date: 20070308
  Receipt Date: 20070305
  Transmission Date: 20070707
  Serious: Yes (Death)
  Sender: FDA-Public Use
  Company Number: 148717USA

PATIENT
  Age: 71 Year
  Sex: Male

DRUGS (3)
  1. AZILECT [Suspect]
     Indication: PARKINSON'S DISEASE
     Dosage: 1 MG (1 MG, 1 IN 1 D), ORAL
     Route: 048
     Dates: start: 20060801, end: 20060901
  2. ZOLPIDEM TARTRATE [Concomitant]
  3. ESCITALOPRAM OXALATE [Concomitant]

REACTIONS (5)
  - COMPLETED SUICIDE [None]
  - CONDITION AGGRAVATED [None]
  - DEPRESSION [None]
  - GUN SHOT WOUND [None]
  - INTENTIONAL SELF-INJURY [None]
